FAERS Safety Report 5269302-3 (Version None)
Quarter: 2007Q1

REPORT INFORMATION
  Report Type: 
  Country: None (occurrence: None)
  Receive Date: 20070319
  Receipt Date: 20070307
  Transmission Date: 20070707
  Serious: Yes (Other)
  Sender: FDA-Public Use
  Company Number: FR-PFIZER INC-2007007122

PATIENT
  Sex: Male

DRUGS (3)
  1. LYRICA [Suspect]
     Indication: DIABETIC NEUROPATHY
     Dates: start: 20061001, end: 20070101
  2. LYRICA [Suspect]
     Indication: NEURALGIA
  3. GABAPENTIN [Suspect]
     Indication: DIABETIC NEUROPATHY

REACTIONS (18)
  - ANOREXIA [None]
  - ANXIETY [None]
  - DISTURBANCE IN ATTENTION [None]
  - DIZZINESS [None]
  - ERECTILE DYSFUNCTION [None]
  - FATIGUE [None]
  - FEELING HOT [None]
  - GAIT DISTURBANCE [None]
  - HOT FLUSH [None]
  - HYPERHIDROSIS [None]
  - IRRITABILITY [None]
  - LIBIDO DECREASED [None]
  - MALAISE [None]
  - MEMORY IMPAIRMENT [None]
  - RASH [None]
  - SOMNOLENCE [None]
  - URINARY INCONTINENCE [None]
  - WEIGHT INCREASED [None]
